FAERS Safety Report 24665202 (Version 3)
Quarter: 2024Q4

REPORT INFORMATION
  Report Type: Spontaneous
  Country: ES (occurrence: ES)
  Receive Date: 20241126
  Receipt Date: 20241213
  Transmission Date: 20250114
  Serious: Yes (Hospitalization)
  Sender: ROCHE
  Company Number: None

PATIENT
  Age: 30 Year
  Sex: Male
  Weight: 49.9 kg

DRUGS (12)
  1. EMICIZUMAB [Suspect]
     Active Substance: EMICIZUMAB
     Indication: Factor VIII deficiency
     Dosage: LAST DOSE OF EMICIZUMAB-07-AUG-2024
     Route: 065
     Dates: end: 20240807
  2. ELOCTA [Suspect]
     Active Substance: EFMOROCTOCOG ALFA
     Indication: Factor VIII deficiency
     Dosage: UNTIL IMPROVEMENT
     Route: 065
     Dates: start: 202305
  3. ELOCTA [Suspect]
     Active Substance: EFMOROCTOCOG ALFA
     Dosage: 2.000/2.5 DAYS (44.4U/KG) ADMINISTRATION INTERVAL 60 H (2.5 DAYS) 95% CI 36-72 MAXIMUM VALUE 0.94 UI
     Route: 065
     Dates: start: 20231013, end: 202311
  4. ELOCTA [Suspect]
     Active Substance: EFMOROCTOCOG ALFA
     Dosage: 3000U/2.5 DAYS,  (66,67U/KG)
     Route: 065
     Dates: start: 20231110
  5. ELOCTA [Suspect]
     Active Substance: EFMOROCTOCOG ALFA
     Dosage: 2.000/2.5 DAYS (44.4U/KG) ADMINISTRATION INTERVAL 60 H (2.5 DAYS) 95% CI 36-72 MAXIMUM VALUE 0.94 UI
     Route: 065
     Dates: start: 202309, end: 202311
  6. ELOCTA [Suspect]
     Active Substance: EFMOROCTOCOG ALFA
     Dosage: 3000U/2, (66,67U/KG)
     Route: 065
     Dates: start: 202311
  7. ELOCTA [Suspect]
     Active Substance: EFMOROCTOCOG ALFA
     Dosage: 3000U/2, (66,67U/KG)
     Route: 065
     Dates: start: 202311, end: 20231227
  8. EFANESOCTOCOG ALFA [Suspect]
     Active Substance: EFANESOCTOCOG ALFA
     Indication: Factor VIII deficiency
     Dosage: 3.000U (50IU/KG/WEEK)
     Route: 065
  9. METAMIZOLE [Concomitant]
     Active Substance: METAMIZOLE
     Dosage: ON DEMAND
  10. ACETAMINOPHEN [Concomitant]
     Active Substance: ACETAMINOPHEN
     Indication: Product used for unknown indication
     Dosage: ON DEMAND
  11. CELECOXIB [Concomitant]
     Active Substance: CELECOXIB
     Indication: Product used for unknown indication
     Dosage: ON DEMAND
  12. TRAMADOL [Concomitant]
     Active Substance: TRAMADOL
     Indication: Product used for unknown indication
     Dosage: ON DEMAND

REACTIONS (2)
  - Haemophilic arthropathy [Not Recovered/Not Resolved]
  - Therapeutic response decreased [Recovered/Resolved]

NARRATIVE: CASE EVENT DATE: 20230601
